FAERS Safety Report 15500435 (Version 3)
Quarter: 2019Q1

REPORT INFORMATION
  Report Type: Report from Study
  Country: IN (occurrence: IN)
  Receive Date: 20181015
  Receipt Date: 20190219
  Transmission Date: 20190417
  Serious: Yes (Hospitalization)
  Sender: FDA-Public Use
  Company Number: IN-ASTRAZENECA-2018SF32909

PATIENT
  Age: 22047 Day
  Sex: Male

DRUGS (42)
  1. METFORMIN [Concomitant]
     Active Substance: METFORMIN HYDROCHLORIDE
     Indication: BLOOD GLUCOSE INCREASED
     Route: 048
     Dates: start: 20181005, end: 20181011
  2. CARVEDILOL. [Concomitant]
     Active Substance: CARVEDILOL
     Indication: BLOOD PRESSURE INCREASED
     Route: 048
     Dates: start: 20180222, end: 20180409
  3. CARVEDILOL. [Concomitant]
     Active Substance: CARVEDILOL
     Indication: CARDIAC FAILURE CONGESTIVE
     Route: 048
     Dates: start: 20180222, end: 20180409
  4. CARVEDILOL. [Concomitant]
     Active Substance: CARVEDILOL
     Indication: BLOOD PRESSURE INCREASED
     Route: 048
     Dates: start: 20180409, end: 20181005
  5. TORASEMIDE [Concomitant]
     Active Substance: TORSEMIDE
     Indication: BLOOD PRESSURE INCREASED
     Route: 048
     Dates: start: 20180608, end: 20180612
  6. VOGLIBOSE [Concomitant]
     Active Substance: VOGLIBOSE
     Indication: DIABETES MELLITUS
     Route: 048
     Dates: start: 20180409, end: 20181005
  7. DAPAGLIFLOZIN. [Suspect]
     Active Substance: DAPAGLIFLOZIN
     Indication: CARDIAC FAILURE
     Route: 048
     Dates: start: 20180208, end: 20181011
  8. METFORMIN [Concomitant]
     Active Substance: METFORMIN HYDROCHLORIDE
     Indication: BLOOD GLUCOSE INCREASED
     Route: 048
     Dates: end: 20181011
  9. CARVEDILOL. [Concomitant]
     Active Substance: CARVEDILOL
     Indication: BLOOD PRESSURE INCREASED
     Route: 048
     Dates: start: 20180208, end: 20180222
  10. CARVEDILOL. [Concomitant]
     Active Substance: CARVEDILOL
     Indication: CARDIAC FAILURE CONGESTIVE
     Route: 048
     Dates: start: 20181005, end: 20181011
  11. VOGLIBOSE [Concomitant]
     Active Substance: VOGLIBOSE
     Indication: DIABETES MELLITUS
     Route: 048
     Dates: end: 20180222
  12. VOGLIBOSE [Concomitant]
     Active Substance: VOGLIBOSE
     Indication: DIABETES MELLITUS
     Route: 048
     Dates: start: 20180222, end: 20180409
  13. CARVEDILOL. [Concomitant]
     Active Substance: CARVEDILOL
     Indication: CARDIAC FAILURE CONGESTIVE
     Route: 048
     Dates: start: 20180208, end: 20180222
  14. TORASEMIDE [Concomitant]
     Active Substance: TORSEMIDE
     Indication: BLOOD PRESSURE INCREASED
     Route: 048
     Dates: start: 20181013
  15. GLIMEPIRIDE. [Concomitant]
     Active Substance: GLIMEPIRIDE
     Indication: DIABETES MELLITUS
     Route: 048
     Dates: start: 20181005, end: 20181011
  16. ASPIRIN. [Concomitant]
     Active Substance: ASPIRIN
     Indication: ANTIPLATELET THERAPY
     Route: 048
  17. TORASEMIDE [Concomitant]
     Active Substance: TORSEMIDE
     Indication: BLOOD PRESSURE INCREASED
     Route: 048
     Dates: end: 20180608
  18. IVABRADINE [Concomitant]
     Active Substance: IVABRADINE
     Indication: CARDIOVASCULAR EVENT PROPHYLAXIS
     Route: 048
     Dates: start: 20180409, end: 20181011
  19. GLIMEPIRIDE. [Concomitant]
     Active Substance: GLIMEPIRIDE
     Indication: DIABETES MELLITUS
     Route: 048
     Dates: start: 20180208, end: 20180215
  20. METFORMIN [Concomitant]
     Active Substance: METFORMIN HYDROCHLORIDE
     Indication: BLOOD GLUCOSE INCREASED
     Route: 048
     Dates: start: 20181013, end: 20181014
  21. CARVEDILOL. [Concomitant]
     Active Substance: CARVEDILOL
     Indication: BLOOD PRESSURE INCREASED
     Route: 048
     Dates: end: 20180208
  22. CARVEDILOL. [Concomitant]
     Active Substance: CARVEDILOL
     Indication: CARDIAC FAILURE CONGESTIVE
     Route: 048
     Dates: end: 20180208
  23. CARVEDILOL. [Concomitant]
     Active Substance: CARVEDILOL
     Indication: CARDIAC FAILURE CONGESTIVE
     Route: 048
     Dates: start: 20180409, end: 20181005
  24. TORASEMIDE [Concomitant]
     Active Substance: TORSEMIDE
     Indication: BLOOD PRESSURE INCREASED
     Route: 048
     Dates: start: 20180612, end: 20181008
  25. GLIMEPIRIDE. [Concomitant]
     Active Substance: GLIMEPIRIDE
     Indication: DIABETES MELLITUS
     Route: 048
     Dates: end: 20180208
  26. GLIMEPIRIDE. [Concomitant]
     Active Substance: GLIMEPIRIDE
     Indication: DIABETES MELLITUS
     Route: 048
     Dates: start: 20181005, end: 20181011
  27. GLIMEPIRIDE. [Concomitant]
     Active Substance: GLIMEPIRIDE
     Indication: DIABETES MELLITUS
     Route: 048
     Dates: start: 20181019
  28. DAPAGLIFLOZIN. [Suspect]
     Active Substance: DAPAGLIFLOZIN
     Indication: CARDIAC FAILURE
     Route: 048
     Dates: start: 20181031
  29. CARVEDILOL. [Concomitant]
     Active Substance: CARVEDILOL
     Indication: BLOOD PRESSURE INCREASED
     Route: 048
     Dates: start: 20181019
  30. CARVEDILOL. [Concomitant]
     Active Substance: CARVEDILOL
     Indication: CARDIAC FAILURE CONGESTIVE
     Route: 048
     Dates: start: 20181019
  31. IVABRADINE [Concomitant]
     Active Substance: IVABRADINE
     Indication: CARDIOVASCULAR EVENT PROPHYLAXIS
     Route: 048
     Dates: start: 20180108, end: 20180215
  32. GLIMEPIRIDE. [Concomitant]
     Active Substance: GLIMEPIRIDE
     Indication: DIABETES MELLITUS
     Route: 048
     Dates: start: 20180222, end: 20180409
  33. GLIMEPIRIDE. [Concomitant]
     Active Substance: GLIMEPIRIDE
     Indication: DIABETES MELLITUS
     Route: 048
     Dates: start: 20180222, end: 20181005
  34. ATORVASTATIN [Concomitant]
     Active Substance: ATORVASTATIN
     Indication: BLOOD CHOLESTEROL INCREASED
     Route: 048
  35. TORASEMIDE [Concomitant]
     Active Substance: TORSEMIDE
     Indication: BLOOD PRESSURE INCREASED
     Route: 048
     Dates: start: 20181008, end: 20181011
  36. GLIMEPIRIDE. [Concomitant]
     Active Substance: GLIMEPIRIDE
     Indication: DIABETES MELLITUS
     Route: 048
     Dates: start: 20180215, end: 20180222
  37. GLIMEPIRIDE. [Concomitant]
     Active Substance: GLIMEPIRIDE
     Indication: DIABETES MELLITUS
     Route: 048
     Dates: start: 20180409, end: 20181005
  38. METFORMIN [Concomitant]
     Active Substance: METFORMIN HYDROCHLORIDE
     Indication: BLOOD GLUCOSE INCREASED
     Route: 048
     Dates: start: 20181014
  39. CARVEDILOL. [Concomitant]
     Active Substance: CARVEDILOL
     Indication: BLOOD PRESSURE INCREASED
     Route: 048
     Dates: start: 20181005, end: 20181011
  40. IVABRADINE [Concomitant]
     Active Substance: IVABRADINE
     Indication: CARDIOVASCULAR EVENT PROPHYLAXIS
     Route: 048
     Dates: start: 20180215, end: 20180409
  41. GLIMEPIRIDE. [Concomitant]
     Active Substance: GLIMEPIRIDE
     Indication: DIABETES MELLITUS
     Route: 048
     Dates: start: 20180208, end: 20180215
  42. GLIMEPIRIDE. [Concomitant]
     Active Substance: GLIMEPIRIDE
     Indication: DIABETES MELLITUS
     Route: 048
     Dates: start: 20181013, end: 20181014

REACTIONS (1)
  - Cardiac failure congestive [Recovering/Resolving]

NARRATIVE: CASE EVENT DATE: 20181011
